FAERS Safety Report 7346978-8 (Version None)
Quarter: 2011Q1

REPORT INFORMATION
  Report Type: 
  Country: None (occurrence: None)
  Receive Date: 20110311
  Receipt Date: 20110225
  Transmission Date: 20110831
  Serious: Yes (Hospitalization, Other)
  Sender: FDA-Public Use
  Company Number: PHHY2011BR16373

PATIENT
  Sex: Male

DRUGS (1)
  1. DIOVAN HCT [Suspect]
     Indication: HYPERTENSION
     Dosage: 80/12.5MG (ONE TABLET DAILY)
     Route: 048

REACTIONS (6)
  - MALAISE [None]
  - HYPERTENSION [None]
  - PROSTATIC DISORDER [None]
  - CYANOSIS [None]
  - DYSPNOEA [None]
  - DRUG INEFFECTIVE [None]
